FAERS Safety Report 6899299-1 (Version None)
Quarter: 2010Q3

REPORT INFORMATION
  Report Type: 
  Country: None (occurrence: None)
  Receive Date: 20100802
  Receipt Date: 20090305
  Transmission Date: 20110219
  Serious: Yes (Other)
  Sender: FDA-Public Use
  Company Number: US-PFIZER INC-2007061989

PATIENT
  Sex: Male
  Weight: 76 kg

DRUGS (4)
  1. LYRICA [Suspect]
     Indication: CONVULSION
     Dosage: 50 AM/ 75 PM
     Dates: start: 20070618, end: 20070701
  2. LYRICA [Suspect]
     Indication: OPTIC NERVE GLIOMA
  3. LYRICA [Suspect]
     Indication: GLIOMA
  4. TOPIRAMATE [Concomitant]
     Dosage: 200 MG, 2X/DAY
     Route: 048

REACTIONS (6)
  - CONVULSION [None]
  - DYSPNOEA [None]
  - GAIT DISTURBANCE [None]
  - HEADACHE [None]
  - MUSCLE SPASMS [None]
  - SOMNOLENCE [None]
